FAERS Safety Report 21199731 (Version 4)
Quarter: 2025Q4

REPORT INFORMATION
  Report Type: Spontaneous
  Country: JP (occurrence: JP)
  Receive Date: 20220811
  Receipt Date: 20251203
  Transmission Date: 20260117
  Serious: Yes (Hospitalization)
  Sender: ROCHE
  Company Number: JP-CHUGAI-2022014854AA

PATIENT
  Age: 65 Year
  Sex: Male
  Weight: 71.4 kg

DRUGS (11)
  1. TECENTRIQ [Suspect]
     Active Substance: ATEZOLIZUMAB
     Indication: Hepatocellular carcinoma
     Dosage: 1200 MILLIGRAM, SINGLE
     Route: 042
     Dates: start: 20220308, end: 20220308
  2. AVASTIN [Suspect]
     Active Substance: BEVACIZUMAB
     Indication: Hepatocellular carcinoma
     Dosage: 1070 MILLIGRAM, SINGLE
     Route: 042
     Dates: start: 20220308, end: 20220308
  3. ALLOPURINOL [Concomitant]
     Active Substance: ALLOPURINOL
     Route: 048
  4. AMLODIPINE BESYLATE [Concomitant]
     Active Substance: AMLODIPINE BESYLATE
     Route: 048
  5. ENALAPRIL [Concomitant]
     Active Substance: ENALAPRIL
     Dosage: 5 MILLIGRAM
     Route: 048
  6. FENOFIBRATE [Concomitant]
     Active Substance: FENOFIBRATE
     Dosage: 80 MILLIGRAM
     Route: 048
  7. LANSOPRAZOLE [Concomitant]
     Active Substance: LANSOPRAZOLE
     Dosage: 15 MILLIGRAM
     Route: 048
  8. HUMALOG [Concomitant]
     Active Substance: INSULIN LISPRO
     Route: 058
     Dates: start: 20200226
  9. INSULIN GLARGINE [Concomitant]
     Active Substance: INSULIN GLARGINE
     Dosage: UNK
     Route: 058
     Dates: start: 20200226
  10. LOXOPROFEN [Concomitant]
     Active Substance: LOXOPROFEN
     Dosage: 180 MILLIGRAM
     Route: 048
     Dates: start: 20211116
  11. REBAMIPIDE [Concomitant]
     Active Substance: REBAMIPIDE
     Dosage: 300 MILLIGRAM
     Route: 048
     Dates: start: 20211116

REACTIONS (1)
  - Immune-mediated encephalitis [Recovered/Resolved]

NARRATIVE: CASE EVENT DATE: 20220323
